FAERS Safety Report 7290127-1 (Version None)
Quarter: 2011Q1

REPORT INFORMATION
  Report Type: 
  Country: None (occurrence: None)
  Receive Date: 20110214
  Receipt Date: 20110203
  Transmission Date: 20110831
  Serious: Yes (Death)
  Sender: FDA-Public Use
  Company Number: US-JNJFOC-20110100767

PATIENT
  Sex: Male

DRUGS (6)
  1. RESTASIS [Concomitant]
  2. LEVOTHYROXINE SODIUM [Concomitant]
  3. METHOTREXATE [Concomitant]
     Indication: PITYRIASIS RUBRA PILARIS
  4. REMICADE [Suspect]
     Indication: PITYRIASIS RUBRA PILARIS
     Route: 042
  5. SIMVASTATIN [Concomitant]
  6. FOLIC ACID [Concomitant]

REACTIONS (1)
  - GASTROOESOPHAGEAL CANCER [None]
